FAERS Safety Report 7345516-3 (Version None)
Quarter: 2011Q1

REPORT INFORMATION
  Report Type: 
  Country: None (occurrence: None)
  Receive Date: 20110310
  Receipt Date: 20110228
  Transmission Date: 20110831
  Serious: Yes (Other)
  Sender: FDA-Public Use
  Company Number: US-GENENTECH-314735

PATIENT

DRUGS (6)
  1. CYCLOPHOSPHAMIDE [Suspect]
     Indication: DIFFUSE LARGE B-CELL LYMPHOMA
     Dosage: 750 MG/M2, Q21D
     Route: 042
  2. DOXORUBICIN [Suspect]
     Indication: DIFFUSE LARGE B-CELL LYMPHOMA
     Dosage: 50 MG/M2, Q21D
     Route: 042
  3. SARGRAMOSTIM [Suspect]
     Indication: DIFFUSE LARGE B-CELL LYMPHOMA
     Dosage: UNK
     Route: 058
  4. PREDNISONE [Suspect]
     Indication: DIFFUSE LARGE B-CELL LYMPHOMA
     Dosage: 100 MG/M2, Q21D
     Route: 048
  5. VINCRISTINE [Suspect]
     Indication: DIFFUSE LARGE B-CELL LYMPHOMA
     Dosage: 2 MG, Q21D
     Route: 042
  6. RITUXIMAB [Suspect]
     Indication: DIFFUSE LARGE B-CELL LYMPHOMA
     Dosage: 375 MG/M2, Q21D
     Route: 042

REACTIONS (18)
  - SMALL INTESTINAL OBSTRUCTION [None]
  - MUCOSAL INFLAMMATION [None]
  - GASTROINTESTINAL HAEMORRHAGE [None]
  - MYALGIA [None]
  - THROMBOCYTOPENIA [None]
  - VOMITING [None]
  - LEUKOPENIA [None]
  - CONSTIPATION [None]
  - NEUTROPENIC INFECTION [None]
  - FEBRILE NEUTROPENIA [None]
  - LEFT VENTRICULAR DYSFUNCTION [None]
  - NAUSEA [None]
  - INFECTION [None]
  - DYSPNOEA [None]
  - NEUTROPENIA [None]
  - ABDOMINAL PAIN UPPER [None]
  - THROMBOSIS [None]
  - HYPOTENSION [None]
